FAERS Safety Report 12326070 (Version 1)
Quarter: 2016Q2

REPORT INFORMATION
  Report Type: Spontaneous
  Country: US (occurrence: None)
  Receive Date: 20160502
  Receipt Date: 20160502
  Transmission Date: 20160815
  Serious: No
  Sender: FDA-Public Use
  Company Number: None

PATIENT
  Age: 58 Year
  Sex: Male
  Weight: 95.26 kg

DRUGS (7)
  1. BCG [Suspect]
     Active Substance: BCG VACCINE
     Indication: BLADDER TRANSITIONAL CELL CARCINOMA STAGE I
     Dosage: BY CATHETER TO BLADDER/KIDNEY
  2. VITAMIN C [Concomitant]
     Active Substance: ASCORBIC ACID
  3. ATIVAN [Concomitant]
     Active Substance: LORAZEPAM
  4. BCG [Suspect]
     Active Substance: BCG VACCINE
     Indication: TRANSITIONAL CELL CARCINOMA URETHRA
     Dosage: BY CATHETER TO BLADDER/KIDNEY
  5. METROPOLOL [Concomitant]
     Active Substance: METOPROLOL
  6. MULTIVITAMIN [Concomitant]
     Active Substance: VITAMINS
  7. LISINOPRIL. [Concomitant]
     Active Substance: LISINOPRIL

REACTIONS (9)
  - Disturbance in attention [None]
  - Dizziness [None]
  - Malaise [None]
  - Night sweats [None]
  - Back pain [None]
  - Cough [None]
  - Fatigue [None]
  - Pyrexia [None]
  - Nausea [None]

NARRATIVE: CASE EVENT DATE: 20160413
